FAERS Safety Report 10164995 (Version 1)
Quarter: 2014Q2

REPORT INFORMATION
  Report Type: Spontaneous
  Country: US (occurrence: US)
  Receive Date: 20140510
  Receipt Date: 20140510
  Transmission Date: 20141212
  Serious: No
  Sender: FDA-Public Use
  Company Number: US-BRISTOL-MYERS SQUIBB COMPANY-19686153

PATIENT
  Age: 70 Year
  Sex: Female

DRUGS (2)
  1. BYDUREON  2MG SUSPENSION [Suspect]
     Route: 058
     Dates: start: 201304
  2. GLIPIZIDE [Suspect]

REACTIONS (1)
  - Drug ineffective [Unknown]
